FAERS Safety Report 10914941 (Version 1)
Quarter: 2015Q1

REPORT INFORMATION
  Report Type: Report from Study
  Country: CH (occurrence: CH)
  Receive Date: 20150314
  Receipt Date: 20150314
  Transmission Date: 20150721
  Serious: Yes (Hospitalization)
  Sender: FDA-Public Use
  Company Number: CH-BIOGENIDEC-2015BI031330

PATIENT
  Sex: Female

DRUGS (9)
  1. METFIN [Concomitant]
     Active Substance: METFORMIN HYDROCHLORIDE
     Indication: DIABETES MELLITUS
  2. METAZEREC [Concomitant]
     Indication: DIABETES MELLITUS
  3. AVONEX [Suspect]
     Active Substance: INTERFERON BETA-1A
     Indication: MULTIPLE SCLEROSIS
     Route: 030
  4. SINCORA [Concomitant]
     Indication: DIABETES MELLITUS
  5. ASPIRIN CARDIO [Concomitant]
     Active Substance: ASPIRIN
     Indication: DIABETES MELLITUS
  6. HUMALOG [Concomitant]
     Active Substance: INSULIN LISPRO
     Indication: DIABETES MELLITUS
  7. AVONEX [Suspect]
     Active Substance: INTERFERON BETA-1A
     Indication: MULTIPLE SCLEROSIS
     Route: 030
     Dates: start: 20010424
  8. TRISIBA [Concomitant]
     Indication: DIABETES MELLITUS
  9. VASCORT [Concomitant]
     Indication: DIABETES MELLITUS

REACTIONS (3)
  - Multiple sclerosis relapse [Recovered/Resolved]
  - Diplopia [Recovered/Resolved]
  - Influenza like illness [Recovered/Resolved]

NARRATIVE: CASE EVENT DATE: 20140914
